FAERS Safety Report 8791214 (Version 1)
Quarter: 2012Q4

REPORT INFORMATION
  Report Type: Spontaneous
  Country: DE (occurrence: None)
  Receive Date: 20120911
  Receipt Date: 20120911
  Transmission Date: 20130627
  Serious: Yes (Hospitalization)
  Sender: FDA-Public Use
  Company Number: DA_58876_2012

PATIENT
  Age: 74 Year
  Sex: Female
  Weight: 43 kg

DRUGS (1)
  1. VENLAFAXINE [Suspect]

REACTIONS (7)
  - Infection [None]
  - Chronic obstructive pulmonary disease [None]
  - Pallor [None]
  - Cyanosis [None]
  - Convulsion [None]
  - Skin turgor decreased [None]
  - Emphysema [None]
